FAERS Safety Report 9220790 (Version 3)
Quarter: 2013Q2

REPORT INFORMATION
  Report Type: Spontaneous
  Country: BR (occurrence: BR)
  Receive Date: 20130409
  Receipt Date: 20130523
  Transmission Date: 20140414
  Serious: Yes (Other)
  Sender: FDA-Public Use
  Company Number: BR-PFIZER INC-2013109370

PATIENT
  Age: 55 Year
  Sex: Female

DRUGS (1)
  1. CHAMPIX [Suspect]
     Indication: SMOKING CESSATION THERAPY
     Dosage: UNK
     Route: 048
     Dates: start: 20130124

REACTIONS (7)
  - Hepatotoxicity [Recovered/Resolved]
  - Gastric disorder [Not Recovered/Not Resolved]
  - Vomiting [Recovered/Resolved]
  - Abnormal faeces [Recovering/Resolving]
  - Urine odour abnormal [Recovering/Resolving]
  - Nausea [Recovering/Resolving]
  - Dysgeusia [Recovering/Resolving]
